FAERS Safety Report 22602711 (Version 4)
Quarter: 2024Q1

REPORT INFORMATION
  Report Type: Spontaneous
  Country: JP (occurrence: JP)
  Receive Date: 20230615
  Receipt Date: 20240223
  Transmission Date: 20240410
  Serious: Yes (Hospitalization, Other)
  Sender: FDA-Public Use
  Company Number: JP-DSJP-DSJ-2023-121729

PATIENT
  Age: 78 Year
  Sex: Female

DRUGS (10)
  1. DENOSUMAB [Suspect]
     Active Substance: DENOSUMAB
     Indication: Osteoporosis
     Dosage: 60 MILLIGRAM, Q6MO (2021/10/12, 2022/04/??)
     Route: 058
     Dates: start: 20211012
  2. PREDONINE [Suspect]
     Active Substance: PREDNISOLONE
     Indication: Anti-neutrophil cytoplasmic antibody positive vasculitis
     Dosage: 15MG-15MG-5MG, TID
     Route: 048
     Dates: start: 20120317
  3. PREDONINE [Suspect]
     Active Substance: PREDNISOLONE
     Dosage: UNK
     Route: 048
  4. VEMLIDY [Concomitant]
     Active Substance: TENOFOVIR ALAFENAMIDE FUMARATE
     Indication: Hepatitis B
     Dosage: 25 MILLIGRAM, QD
     Route: 048
     Dates: start: 20180306
  5. REPAGLINIDE [Concomitant]
     Active Substance: REPAGLINIDE
     Indication: Diabetes mellitus
     Dosage: 0.5 MILLIGRAM, QD
     Route: 048
     Dates: start: 20210406
  6. LINAGLIPTIN [Concomitant]
     Active Substance: LINAGLIPTIN
     Indication: Diabetes mellitus
     Dosage: 5 MILLIGRAM, QD
     Route: 048
     Dates: start: 20130906
  7. HUMALOG [Concomitant]
     Active Substance: INSULIN LISPRO
     Indication: Diabetes mellitus
     Dosage: 6-24-24DF, TID
     Route: 065
     Dates: start: 20190628
  8. HUMALOG [Concomitant]
     Active Substance: INSULIN LISPRO
     Dosage: UNK
     Route: 065
  9. EPINEPHRINE BITARTRATE\LIDOCAINE HYDROCHLORIDE [Concomitant]
     Active Substance: EPINEPHRINE BITARTRATE\LIDOCAINE HYDROCHLORIDE
     Indication: Tooth extraction
     Dosage: 1.8 MILLILITER, QD
     Route: 061
     Dates: start: 20220525
  10. CITANEST OCTAPRESSIN [Concomitant]
     Indication: Tooth extraction
     Dosage: 1.8 ML, QD
     Route: 061
     Dates: start: 20220525

REACTIONS (4)
  - Periodontitis [Unknown]
  - Osteonecrosis of jaw [Not Recovered/Not Resolved]
  - Sinusitis fungal [Not Recovered/Not Resolved]
  - Interstitial lung disease [Unknown]

NARRATIVE: CASE EVENT DATE: 20220506
